FAERS Safety Report 8058013-7 (Version None)
Quarter: 2012Q1

REPORT INFORMATION
  Report Type: 
  Country: None (occurrence: None)
  Receive Date: 20120120
  Receipt Date: 20120116
  Transmission Date: 20120608
  Serious: No
  Sender: FDA-Public Use
  Company Number: US-PFIZER INC-2012013086

PATIENT
  Sex: Male
  Weight: 69.841 kg

DRUGS (4)
  1. WELLBUTRIN [Concomitant]
     Indication: DEPRESSION
     Dosage: UNK
     Route: 048
  2. WELLBUTRIN [Concomitant]
     Indication: ANXIETY
  3. PRISTIQ [Suspect]
     Indication: ANXIETY
  4. PRISTIQ [Suspect]
     Indication: DEPRESSION
     Dosage: 500 MG, DAILY
     Route: 048
     Dates: start: 20100101, end: 20120114

REACTIONS (6)
  - MALAISE [None]
  - NAUSEA [None]
  - DIZZINESS [None]
  - ANGER [None]
  - WITHDRAWAL SYNDROME [None]
  - FEELING ABNORMAL [None]
